FAERS Safety Report 14496729 (Version 1)
Quarter: 2018Q1

REPORT INFORMATION
  Report Type: Spontaneous
  Country: US (occurrence: US)
  Receive Date: 20180206
  Receipt Date: 20180206
  Transmission Date: 20180509
  Serious: Yes (Other)
  Sender: FDA-Public Use
  Company Number: None

PATIENT
  Age: 27 Year
  Sex: Female

DRUGS (1)
  1. COPAXONE [Suspect]
     Active Substance: GLATIRAMER ACETATE
     Indication: MULTIPLE SCLEROSIS
     Route: 030
     Dates: start: 2017, end: 2018

REACTIONS (3)
  - Gait disturbance [None]
  - Condition aggravated [None]
  - Dizziness [None]

NARRATIVE: CASE EVENT DATE: 20180201
